FAERS Safety Report 7576167-3 (Version None)
Quarter: 2011Q2

REPORT INFORMATION
  Report Type: 
  Country: None (occurrence: None)
  Receive Date: 20110623
  Receipt Date: 20110623
  Transmission Date: 20111010
  Serious: Yes (Death, Hospitalization)
  Sender: FDA-Public Use
  Company Number: None

PATIENT
  Sex: Female
  Weight: 5865 kg

DRUGS (3)
  1. CYCLOPHOSPHAMIDE [Suspect]
     Dosage: 3000 MG
     Dates: end: 20060123
  2. DOXORUBICIN HYDROCHLORIDE [Suspect]
     Dosage: 300 MG
     Dates: end: 20060123
  3. DOCETAXEL [Suspect]
     Dosage: 375 MG
     Dates: end: 20060123

REACTIONS (8)
  - ERYTHEMA NODOSUM [None]
  - ACUTE MYELOID LEUKAEMIA [None]
  - THROMBOCYTOPENIA [None]
  - POLYCYTHAEMIA [None]
  - PULMONARY EMBOLISM [None]
  - TREATMENT RELATED SECONDARY MALIGNANCY [None]
  - FEBRILE NEUTROPENIA [None]
  - CLOSTRIDIUM DIFFICILE COLITIS [None]
